FAERS Safety Report 8078278-5 (Version None)
Quarter: 2012Q1

REPORT INFORMATION
  Report Type: 
  Country: None (occurrence: None)
  Receive Date: 20120127
  Receipt Date: 20110108
  Transmission Date: 20120608
  Serious: No
  Sender: FDA-Public Use
  Company Number: US-ABBOTT-11P-163-0696244-00

PATIENT
  Age: 59 Year
  Sex: Female

DRUGS (6)
  1. LEVOTHYROXINE SODIUM [Concomitant]
     Indication: HYPOTHYROIDISM
  2. AMLODIPINE [Concomitant]
     Indication: HYPERTENSION
  3. HUMIRA [Suspect]
     Indication: CROHN'S DISEASE
  4. COREG [Concomitant]
     Indication: HYPERTENSION
  5. POTASSIUM [Concomitant]
     Indication: PRODUCT USED FOR UNKNOWN INDICATION
  6. OMEPRAZOLE [Concomitant]
     Indication: DYSPEPSIA

REACTIONS (7)
  - KIDNEY INFECTION [None]
  - PAIN [None]
  - DYSURIA [None]
  - MALAISE [None]
  - DRUG INEFFECTIVE [None]
  - ASTHENIA [None]
  - DYSPEPSIA [None]
